FAERS Safety Report 4883704-6 (Version None)
Quarter: 2006Q1

REPORT INFORMATION
  Report Type: 
  Country: None (occurrence: None)
  Receive Date: 20060118
  Receipt Date: 20050526
  Transmission Date: 20060701
  Serious: Yes (Death, Other)
  Sender: FDA-Public Use
  Company Number: PHEH2005US05993

PATIENT
  Age: 83 Year
  Sex: Female

DRUGS (14)
  1. ZOMETA [Suspect]
     Indication: BREAST CANCER METASTATIC
     Dosage: UNK
     Route: 042
     Dates: start: 20030305, end: 20030723
  2. TENORMIN [Concomitant]
     Indication: HYPERTENSION
     Dates: start: 20050907
  3. POTASSIUM CHLORIDE [Concomitant]
     Indication: ELECTROLYTE IMBALANCE
     Dates: start: 20050506
  4. PREVACID [Concomitant]
     Indication: NAUSEA
     Dates: start: 20050506
  5. LASIX [Concomitant]
  6. CHONDROITIN W/GLUCOSAMINE [Concomitant]
     Indication: OSTEOARTHRITIS
     Dates: start: 20050506
  7. AREDIA [Suspect]
     Indication: HYPERCALCAEMIA OF MALIGNANCY
     Dosage: 90 MG, QMO
     Route: 042
     Dates: start: 20041229, end: 20050401
  8. COMPAZINE [Concomitant]
     Indication: NAUSEA
     Dates: start: 20050506
  9. RADIATION THERAPY [Concomitant]
     Indication: ARTHRALGIA
     Dosage: 3000CGY IN 10 FRACTIONS
     Dates: start: 20050104, end: 20050118
  10. RADIATION THERAPY [Concomitant]
     Dosage: 2000CGY IN 5 FRACTIONS
  11. LEXAPRO [Concomitant]
     Indication: DEPRESSION
     Dates: start: 20050701
  12. ALPRAZOLAM [Concomitant]
     Indication: ANXIETY
     Dates: start: 20050506
  13. TYLENOL (CAPLET) [Concomitant]
     Indication: PAIN
     Dates: start: 20050506
  14. MULTIVITAMIN [Concomitant]
     Indication: MEDICAL DIET
     Dates: start: 20050506

REACTIONS (10)
  - BONE DEBRIDEMENT [None]
  - BONE DISORDER [None]
  - INFECTION [None]
  - MALIGNANT NEOPLASM PROGRESSION [None]
  - ORAL SOFT TISSUE DISORDER [None]
  - OSTEONECROSIS [None]
  - SWELLING [None]
  - TOOTH DISORDER [None]
  - TOOTH EXTRACTION [None]
  - TOOTHACHE [None]
